FAERS Safety Report 8369257-9 (Version None)
Quarter: 2012Q2

REPORT INFORMATION
  Report Type: 
  Country: None (occurrence: None)
  Receive Date: 20120518
  Receipt Date: 20120509
  Transmission Date: 20120825
  Serious: Yes (Hospitalization)
  Sender: FDA-Public Use
  Company Number: US-ABBOTT-12P-163-0926390-00

PATIENT
  Sex: Female
  Weight: 90.8 kg

DRUGS (2)
  1. LUPRON DEPOT [Suspect]
     Indication: ENDOMETRIOSIS
     Route: 030
     Dates: start: 20120301, end: 20120401
  2. ASPIRIN [Suspect]
     Indication: PRODUCT USED FOR UNKNOWN INDICATION

REACTIONS (16)
  - MOOD SWINGS [None]
  - SIALOADENITIS [None]
  - TEMPOROMANDIBULAR JOINT SYNDROME [None]
  - DEPRESSION [None]
  - OFF LABEL USE [None]
  - PAROTID GLAND ENLARGEMENT [None]
  - AGITATION [None]
  - PAIN IN JAW [None]
  - LOCAL SWELLING [None]
  - OVERDOSE [None]
  - PAROTITIS [None]
  - SUICIDE ATTEMPT [None]
  - DRUG ADMINISTERED TO PATIENT OF INAPPROPRIATE AGE [None]
  - UNEVALUABLE EVENT [None]
  - SWELLING FACE [None]
  - JOINT DISLOCATION [None]
